FAERS Safety Report 14185665 (Version 1)
Quarter: 2017Q4

REPORT INFORMATION
  Report Type: Spontaneous
  Country: US (occurrence: US)
  Receive Date: 20171114
  Receipt Date: 20171114
  Transmission Date: 20180321
  Serious: No
  Sender: FDA-Public Use
  Company Number: US-LEO PHARMA-305384

PATIENT
  Sex: Female

DRUGS (3)
  1. PICATO [Suspect]
     Active Substance: INGENOL MEBUTATE
     Indication: ACTINIC KERATOSIS
     Route: 061
     Dates: start: 20171105, end: 20171106
  2. PICATO [Suspect]
     Active Substance: INGENOL MEBUTATE
     Dates: start: 20171105
  3. PICATO [Suspect]
     Active Substance: INGENOL MEBUTATE

REACTIONS (4)
  - Application site exfoliation [Unknown]
  - Inappropriate schedule of drug administration [Unknown]
  - Application site pruritus [Unknown]
  - Application site erythema [Unknown]
